FAERS Safety Report 9538262 (Version 3)
Quarter: 2019Q3

REPORT INFORMATION
  Report Type: Report from Study
  Country: BR (occurrence: BR)
  Receive Date: 20130920
  Receipt Date: 20190828
  Transmission Date: 20191005
  Serious: Yes (Hospitalization, Other)
  Sender: FDA-Public Use
  Company Number: BR-ROCHE-1276942

PATIENT
  Sex: Female

DRUGS (8)
  1. OMALIZUMAB. [Suspect]
     Active Substance: OMALIZUMAB
     Route: 058
     Dates: start: 201907
  2. BUDECORT [Concomitant]
     Active Substance: BUDESONIDE
     Route: 065
     Dates: start: 2009
  3. OMALIZUMAB. [Suspect]
     Active Substance: OMALIZUMAB
     Route: 058
  4. OMALIZUMAB. [Suspect]
     Active Substance: OMALIZUMAB
     Route: 058
     Dates: start: 20170621
  5. OMALIZUMAB. [Suspect]
     Active Substance: OMALIZUMAB
     Route: 058
  6. SINGULAIR [Concomitant]
     Active Substance: MONTELUKAST SODIUM
     Route: 065
     Dates: start: 2012
  7. OMALIZUMAB. [Suspect]
     Active Substance: OMALIZUMAB
     Indication: ASTHMA
     Dosage: 2 AMPOULES
     Route: 058
     Dates: start: 20130717
  8. SERETIDE [Concomitant]
     Active Substance: FLUTICASONE PROPIONATE\SALMETEROL XINAFOATE
     Route: 065
     Dates: start: 2009

REACTIONS (5)
  - Feeling hot [Not Recovered/Not Resolved]
  - Malaise [Not Recovered/Not Resolved]
  - Influenza [Recovered/Resolved]
  - Dysphagia [Not Recovered/Not Resolved]
  - Urinary tract infection [Unknown]
